FAERS Safety Report 9641260 (Version 2)
Quarter: 2016Q1

REPORT INFORMATION
  Report Type: Report from Study
  Country: US (occurrence: US)
  Receive Date: 20131023
  Receipt Date: 20160208
  Transmission Date: 20160526
  Serious: Yes (Hospitalization, Other)
  Sender: FDA-Public Use
  Company Number: US-ROCHE-1290940

PATIENT
  Sex: Female

DRUGS (20)
  1. FENTANYL. [Concomitant]
     Active Substance: FENTANYL
     Dosage: 50 MCG/HR
     Route: 065
  2. CYMBALTA [Concomitant]
     Active Substance: DULOXETINE HYDROCHLORIDE
     Route: 048
  3. PREDNISONE. [Concomitant]
     Active Substance: PREDNISONE
     Route: 065
  4. VITAMIN D2 [Concomitant]
     Active Substance: ERGOCALCIFEROL
     Dosage: 50000 UNIT CAPSUEL 1 CAPSULE PO QW
     Route: 048
     Dates: start: 20130909, end: 20131008
  5. TIZANIDINE. [Concomitant]
     Active Substance: TIZANIDINE
     Route: 065
  6. SEROQUEL XR [Concomitant]
     Active Substance: QUETIAPINE FUMARATE
     Dosage: 1 TABLET PER ORAL PER HS
     Route: 048
     Dates: start: 20130717, end: 20131014
  7. LIPITOR [Concomitant]
     Active Substance: ATORVASTATIN CALCIUM
     Dosage: 1 TABLET PER ORAL PER QHS, THEARAPY END DATE EXPECTED 13/NOV/2013
     Route: 048
     Dates: start: 20130717
  8. SINGULAIR [Concomitant]
     Active Substance: MONTELUKAST SODIUM
     Route: 065
  9. VICOPROFEN [Concomitant]
     Active Substance: HYDROCODONE BITARTRATE\IBUPROFEN
     Dosage: 7.5MG-200MG TABLET
     Route: 065
  10. SUCRALFATE. [Concomitant]
     Active Substance: SUCRALFATE
     Route: 065
  11. LEVOTHYROXINE. [Concomitant]
     Active Substance: LEVOTHYROXINE
     Dosage: 75 MCG, 1 TABLET ORALLY, EXPECTED END DATE OF THERAPY 26/DEC/2013
     Route: 048
     Dates: start: 20130829
  12. LEVOTHYROXINE. [Concomitant]
     Active Substance: LEVOTHYROXINE
     Route: 065
  13. PROMETHAZINE [Concomitant]
     Active Substance: PROMETHAZINE\PROMETHAZINE HYDROCHLORIDE
     Route: 065
  14. OMEPRAZOLE. [Concomitant]
     Active Substance: OMEPRAZOLE
     Route: 065
  15. FOLIC ACID. [Concomitant]
     Active Substance: FOLIC ACID
     Route: 065
     Dates: start: 20130717, end: 20131014
  16. XOLAIR [Suspect]
     Active Substance: OMALIZUMAB
     Indication: ASTHMA
     Route: 058
  17. SEROQUEL [Concomitant]
     Active Substance: QUETIAPINE FUMARATE
     Route: 065
  18. BENADRYL [Concomitant]
     Active Substance: DIPHENHYDRAMINE HYDROCHLORIDE
     Route: 065
  19. XOLAIR [Suspect]
     Active Substance: OMALIZUMAB
     Indication: HYPERSENSITIVITY
  20. CRESTOR [Concomitant]
     Active Substance: ROSUVASTATIN CALCIUM
     Dosage: 1 TABLET ORALLY PER HS
     Route: 048
     Dates: start: 20130707, end: 20131004

REACTIONS (19)
  - Dyspnoea [Unknown]
  - Anxiety [Unknown]
  - Fatigue [Unknown]
  - Chest discomfort [Unknown]
  - Nasal congestion [Unknown]
  - Wheezing [Unknown]
  - International normalised ratio abnormal [Unknown]
  - Venous thrombosis [Unknown]
  - Cough [Unknown]
  - Ear congestion [Unknown]
  - Choking sensation [Unknown]
  - Hyperglycaemia [Not Recovered/Not Resolved]
  - Pneumonia fungal [Unknown]
  - Exercise tolerance decreased [Unknown]
  - Orthopnoea [Unknown]
  - Candida infection [Unknown]
  - Protein deficiency [Recovering/Resolving]
  - Hypertrophy [Unknown]
  - Upper respiratory tract congestion [Unknown]
